FAERS Safety Report 6470364-6 (Version None)
Quarter: 2009Q4

REPORT INFORMATION
  Report Type: 
  Country: None (occurrence: None)
  Receive Date: 20091203
  Receipt Date: 20091126
  Transmission Date: 20100525
  Serious: Yes (Hospitalization)
  Sender: FDA-Public Use
  Company Number: GB-PFIZER INC-2009280876

PATIENT
  Age: 70 Year
  Sex: Male
  Weight: 70.7 kg

DRUGS (9)
  1. SUNITINIB MALATE [Suspect]
     Indication: HEPATIC NEOPLASM MALIGNANT RECURRENT
     Dosage: 25 MG, 1X/DAY
     Dates: start: 20081229
  2. ENOXAPARIN SODIUM [Concomitant]
     Indication: PORTAL VEIN THROMBOSIS
     Dosage: 40 MG, 1X/DAY
     Dates: start: 20090813
  3. ORAMORPH SR [Concomitant]
     Indication: PAIN IN EXTREMITY
     Dosage: UNK
     Dates: start: 20090908
  4. ACETYLSALICYLIC ACID [Concomitant]
     Indication: CEREBROVASCULAR ACCIDENT PROPHYLAXIS
     Dosage: 75 MG, 1X/DAY
     Dates: start: 20030101
  5. CO-CODAMOL [Concomitant]
     Indication: PAIN IN EXTREMITY
     Dosage: UNK
     Dates: start: 20040101
  6. ROSUVASTATIN [Concomitant]
     Indication: HYPERCHOLESTEROLAEMIA
     Dosage: UNK
     Dates: start: 20010101
  7. RAMIPRIL [Concomitant]
     Indication: HYPERTENSION
     Dosage: 10 MG, 1X/DAY
     Dates: start: 20010101
  8. NYSTATIN [Concomitant]
     Dosage: UNK
     Dates: start: 20090519
  9. LIDOCAINE [Concomitant]
     Dosage: UNK
     Dates: start: 20090519

REACTIONS (1)
  - PERIPHERAL ISCHAEMIA [None]
